FAERS Safety Report 7328604-7 (Version None)
Quarter: 2011Q1

REPORT INFORMATION
  Report Type: 
  Country: None (occurrence: None)
  Receive Date: 20110225
  Receipt Date: 20110225
  Transmission Date: 20110831
  Serious: Yes (Disabling, Other)
  Sender: FDA-Public Use
  Company Number: None

PATIENT
  Age: 30 Year
  Sex: Female
  Weight: 61.2356 kg

DRUGS (1)
  1. CHANTIX [Suspect]
     Indication: TOBACCO USER
     Dosage: 1 DAILY PO
     Route: 048
     Dates: start: 20100709, end: 20100810

REACTIONS (7)
  - BLISTER [None]
  - SKIN ULCER [None]
  - ANXIETY [None]
  - ACTIVITIES OF DAILY LIVING IMPAIRED [None]
  - SKIN EXFOLIATION [None]
  - MOOD SWINGS [None]
  - SUICIDAL IDEATION [None]
